FAERS Safety Report 8156219 (Version 2)
Quarter: 2015Q1

REPORT INFORMATION
  Report Type: Report from Study
  Country: FR (occurrence: FR)
  Receive Date: 20110926
  Receipt Date: 20150203
  Transmission Date: 20150721
  Serious: Yes (Death, Hospitalization)
  Sender: FDA-Public Use
  Company Number: FR-PFIZER INC-2011219397

PATIENT
  Age: 63 Year
  Sex: Male
  Weight: 62 kg

DRUGS (6)
  1. DAUNORUBICIN [Suspect]
     Active Substance: DAUNORUBICIN
     Dosage: UNK
     Dates: start: 20090525, end: 20090714
  2. DAUNORUBICIN [Suspect]
     Active Substance: DAUNORUBICIN
     Indication: ACUTE MYELOID LEUKAEMIA
     Dosage: 110 MG, DAILY
     Route: 041
     Dates: start: 20090312, end: 20090314
  3. ARACYTINE [Suspect]
     Active Substance: CYTARABINE
     Dosage: UNK
     Route: 042
     Dates: start: 20090525, end: 20090716
  4. MYLOTARG [Suspect]
     Active Substance: GEMTUZUMAB OZOGAMICIN
     Indication: ACUTE MYELOID LEUKAEMIA
     Dosage: 5 MG, 1X/DAY
     Route: 041
     Dates: start: 20090312, end: 20090318
  5. MYLOTARG [Suspect]
     Active Substance: GEMTUZUMAB OZOGAMICIN
     Dosage: UNK
     Route: 042
     Dates: start: 20090525, end: 20090713
  6. ARACYTINE [Suspect]
     Active Substance: CYTARABINE
     Indication: ACUTE MYELOID LEUKAEMIA
     Dosage: 360 MG, DAILY
     Route: 041
     Dates: start: 20090312, end: 20090318

REACTIONS (3)
  - Acute myeloid leukaemia [Fatal]
  - Clostridium difficile colitis [Recovered/Resolved]
  - Disease recurrence [Fatal]

NARRATIVE: CASE EVENT DATE: 20090413
